FAERS Safety Report 6567478-9 (Version None)
Quarter: 2010Q1

REPORT INFORMATION
  Report Type: 
  Country: None (occurrence: None)
  Receive Date: 20100202
  Receipt Date: 20100122
  Transmission Date: 20100710
  Serious: Yes (Hospitalization)
  Sender: FDA-Public Use
  Company Number: US-ELI_LILLY_AND_COMPANY-US200911007290

PATIENT
  Sex: Male
  Weight: 113.38 kg

DRUGS (9)
  1. BYETTA [Suspect]
     Indication: TYPE 2 DIABETES MELLITUS
     Dosage: 5 UG, 2/D
     Route: 058
     Dates: start: 20070101, end: 20070101
  2. BYETTA [Suspect]
     Dosage: 10 UG, 2/D
     Route: 058
     Dates: start: 20070101
  3. COMBIGAN [Concomitant]
     Indication: GLAUCOMA
  4. RAMIPRIL [Concomitant]
     Indication: RENAL DISORDER
     Dosage: 5 MG, DAILY (1/D)
     Route: 048
  5. FUROSEMIDE [Concomitant]
     Dosage: 80 MG, DAILY (1/D)
     Route: 048
  6. PANTOPRAZOLE [Concomitant]
     Dosage: 40 MG, 2/D
     Route: 048
  7. ASPIRIN [Concomitant]
     Indication: PROPHYLAXIS
     Dosage: 81 MG, DAILY (1/D)
     Route: 048
  8. TRIAMCINOLONE [Concomitant]
     Route: 061
  9. NEXIUM [Concomitant]
     Dosage: 40 MG, DAILY (1/D)
     Route: 048

REACTIONS (3)
  - ARTHRALGIA [None]
  - JOINT EFFUSION [None]
  - LYMPHADENOPATHY MEDIASTINAL [None]
